FAERS Safety Report 4564021-0 (Version None)
Quarter: 2005Q1

REPORT INFORMATION
  Report Type: 
  Country: None (occurrence: None)
  Receive Date: 20050126
  Receipt Date: 20050111
  Transmission Date: 20050727
  Serious: Yes (Hospitalization)
  Sender: FDA-Public Use
  Company Number: 2005EU000083

PATIENT
  Age: 56 Year
  Sex: Male

DRUGS (1)
  1. FK506 (TACROLIMUS CAPSULES) [Suspect]
     Indication: LIVER TRANSPLANT
     Dosage: 6.00 MG /D, ORAL
     Route: 048
     Dates: start: 20040901

REACTIONS (1)
  - HEPATIC ARTERY STENOSIS [None]
